FAERS Safety Report 10088833 (Version 1)
Quarter: 2014Q2

REPORT INFORMATION
  Report Type: Report from Study
  Country: CA (occurrence: CA)
  Receive Date: 20140421
  Receipt Date: 20140421
  Transmission Date: 20141212
  Serious: Yes (Other)
  Sender: FDA-Public Use
  Company Number: CA-JNJFOC-20140408677

PATIENT
  Age: 44 Year
  Sex: Female
  Weight: 75.8 kg

DRUGS (8)
  1. REMICADE [Suspect]
     Indication: HIDRADENITIS
     Route: 042
     Dates: start: 20090616
  2. PANTOLOC [Concomitant]
     Route: 065
  3. CELEXA [Concomitant]
     Route: 065
  4. MULTIVITAMINS [Concomitant]
     Route: 065
  5. B12 [Concomitant]
     Route: 065
  6. IRON [Concomitant]
     Route: 065
  7. ANAPLEX [Concomitant]
     Route: 065
  8. NAPROXEN [Concomitant]
     Route: 065

REACTIONS (2)
  - Breast mass [Not Recovered/Not Resolved]
  - Off label use [Unknown]
